FAERS Safety Report 15566402 (Version 1)
Quarter: 2018Q4

REPORT INFORMATION
  Report Type: Spontaneous
  Country: US (occurrence: US)
  Receive Date: 20181030
  Receipt Date: 20181030
  Transmission Date: 20190205
  Serious: Yes (Other)
  Sender: FDA-Public Use
  Company Number: None

PATIENT
  Age: 78 Year
  Sex: Female

DRUGS (7)
  1. ELIQUIS [Concomitant]
     Active Substance: APIXABAN
  2. DIGOXIN. [Concomitant]
     Active Substance: DIGOXIN
  3. ESBRIET [Suspect]
     Active Substance: PIRFENIDONE
     Indication: IDIOPATHIC PULMONARY FIBROSIS
     Route: 048
     Dates: start: 20180724, end: 20181022
  4. DILTIAZEM. [Concomitant]
     Active Substance: DILTIAZEM
  5. FUROSEMIDE. [Concomitant]
     Active Substance: FUROSEMIDE
  6. POTASSIUM ACETATE. [Concomitant]
     Active Substance: POTASSIUM ACETATE
  7. SILDENAFIL. [Concomitant]
     Active Substance: SILDENAFIL

REACTIONS (1)
  - Nausea [None]

NARRATIVE: CASE EVENT DATE: 20181030
